FAERS Safety Report 7353635-0 (Version None)
Quarter: 2011Q1

REPORT INFORMATION
  Report Type: 
  Country: None (occurrence: None)
  Receive Date: 20110315
  Receipt Date: 20110310
  Transmission Date: 20110831
  Serious: Yes (Other)
  Sender: FDA-Public Use
  Company Number: US-AMGEN-USASP2011010890

PATIENT
  Age: 69 Year
  Sex: Female
  Weight: 54.875 kg

DRUGS (7)
  1. NIFEDIPINE [Concomitant]
  2. FOLIC ACID [Concomitant]
  3. NPLATE [Suspect]
     Indication: IDIOPATHIC THROMBOCYTOPENIC PURPURA
     Dosage: 390 A?G, QWK
     Route: 058
     Dates: start: 20081107, end: 20081222
  4. PREMARIN [Concomitant]
  5. RITUXIMAB [Concomitant]
  6. ELTROMBOPAG [Concomitant]
  7. OXYBUTYNIN [Concomitant]

REACTIONS (2)
  - ARTHRALGIA [None]
  - NAUSEA [None]
